FAERS Safety Report 8013694-9 (Version None)
Quarter: 2011Q4

REPORT INFORMATION
  Report Type: 
  Country: None (occurrence: None)
  Receive Date: 20111229
  Receipt Date: 20111216
  Transmission Date: 20120403
  Serious: Yes (Other)
  Sender: FDA-Public Use
  Company Number: NL-BAUSCH-2011BL008896

PATIENT
  Sex: Female
  Weight: 68 kg

DRUGS (5)
  1. AMLODIPINE [Concomitant]
     Dates: start: 20070801
  2. FLUORESCEIN [Suspect]
     Indication: INVESTIGATION
     Route: 047
     Dates: start: 20110922, end: 20110922
  3. TRIAMTERENE AND HYDROCHLOROTHIAZIDE [Concomitant]
     Dates: start: 20060701
  4. PHENYLEPHRINE HCL [Suspect]
     Indication: INVESTIGATION
     Route: 047
     Dates: start: 20110922, end: 20110922
  5. TROPICAMIDE [Suspect]
     Indication: INVESTIGATION
     Route: 047
     Dates: start: 20110922, end: 20110922

REACTIONS (1)
  - MYDRIASIS [None]
